FAERS Safety Report 5723376-1 (Version None)
Quarter: 2008Q2

REPORT INFORMATION
  Report Type: 
  Country: None (occurrence: None)
  Receive Date: 20080425
  Receipt Date: 20080414
  Transmission Date: 20081010
  Serious: Yes (Hospitalization)
  Sender: FDA-Public Use
  Company Number: 2008BI001435

PATIENT
  Age: 38 Year
  Sex: Female
  Weight: 65 kg

DRUGS (2)
  1. TYSABRI [Suspect]
     Indication: RELAPSING-REMITTING MULTIPLE SCLEROSIS
     Dosage: 300 MG; QM; IV
     Route: 042
     Dates: start: 20071106, end: 20080101
  2. FLUOXETINE [Concomitant]

REACTIONS (12)
  - BLOOD CHOLESTEROL INCREASED [None]
  - DIPLOPIA [None]
  - DYSARTHRIA [None]
  - HYPERSENSITIVITY [None]
  - IMMUNE COMPLEX LEVEL INCREASED [None]
  - LIPOPROTEIN (A) INCREASED [None]
  - MALAISE [None]
  - MONOPLEGIA [None]
  - PALLOR [None]
  - PARAESTHESIA [None]
  - TENSION [None]
  - TRANSIENT ISCHAEMIC ATTACK [None]
